FAERS Safety Report 12866405 (Version 1)
Quarter: 2016Q4

REPORT INFORMATION
  Report Type: Spontaneous
  Country: US (occurrence: US)
  Receive Date: 20161020
  Receipt Date: 20161020
  Transmission Date: 20170207
  Serious: No
  Sender: FDA-Public Use
  Company Number: US-BAUSCH-BL-2015-023537

PATIENT
  Sex: Female

DRUGS (2)
  1. BUPROPION HYDROCHLORODE XL [Suspect]
     Active Substance: BUPROPION HYDROCHLORIDE
     Indication: PRODUCT USED FOR UNKNOWN INDICATION
     Route: 065
  2. BUPROPION. [Suspect]
     Active Substance: BUPROPION
     Indication: DEPRESSION
     Route: 065
     Dates: start: 1995, end: 201412

REACTIONS (6)
  - Aggression [Unknown]
  - Nervousness [Unknown]
  - Agitation [Unknown]
  - Thinking abnormal [Unknown]
  - Insomnia [Unknown]
  - Adverse drug reaction [Unknown]
